FAERS Safety Report 13177057 (Version 2)
Quarter: 2017Q1

REPORT INFORMATION
  Report Type: Spontaneous
  Country: AU (occurrence: AU)
  Receive Date: 20170201
  Receipt Date: 20170206
  Transmission Date: 20170428
  Serious: Yes (Hospitalization, Other)
  Sender: FDA-Public Use
  Company Number: AU-009507513-1701AUS011109

PATIENT
  Sex: Male

DRUGS (1)
  1. BRIDION [Suspect]
     Active Substance: SUGAMMADEX

REACTIONS (4)
  - Hypotension [Unknown]
  - Anaphylactic reaction [Unknown]
  - Hypoventilation [Unknown]
  - General physical health deterioration [Unknown]
